FAERS Safety Report 5594363-1 (Version None)
Quarter: 2007Q4

REPORT INFORMATION
  Report Type: 
  Country: None (occurrence: None)
  Receive Date: 20071218
  Receipt Date: 20070420
  Transmission Date: 20080405
  Serious: No
  Sender: FDA-Public Use
  Company Number: 2007033692

PATIENT

DRUGS (2)
  1. BEXTRA [Suspect]
     Dosage: ORAL
     Route: 048
     Dates: start: 20040201
  2. VIOXX [Suspect]
     Dosage: ORAL
     Route: 048
     Dates: start: 20020601, end: 20031001

REACTIONS (1)
  - MYOCARDIAL INFARCTION [None]
